FAERS Safety Report 18018850 (Version 1)
Quarter: 2020Q3

REPORT INFORMATION
  Report Type: Spontaneous
  Country: US (occurrence: US)
  Receive Date: 20200713
  Receipt Date: 20200713
  Transmission Date: 20201103
  Serious: Yes (Other)
  Sender: FDA-Public Use
  Company Number: None

PATIENT
  Age: 62 Year
  Sex: Female

DRUGS (7)
  1. METOPROLOL SUCCINATE ER 50MG TABLETS [Concomitant]
  2. AUSTEDO [Suspect]
     Active Substance: DEUTETRABENAZINE
     Indication: TARDIVE DYSKINESIA
     Route: 048
  3. LATUDA 60MG [Concomitant]
  4. VASCEPTA 1GRAM CAPSULE [Concomitant]
  5. ATORVASTATIN 20MG TABLET [Concomitant]
  6. ESCITALOPRAM 20MG (1.5 TABLETS QD) [Concomitant]
  7. VITAMIN D 50,000 IU [Concomitant]

REACTIONS (2)
  - Tachycardia [None]
  - Therapy change [None]

NARRATIVE: CASE EVENT DATE: 20200713
